FAERS Safety Report 8895504 (Version 1)
Quarter: 2012Q4

REPORT INFORMATION
  Report Type: 
  Country: CA (occurrence: CA)
  Receive Date: 20121107
  Receipt Date: 20121107
  Transmission Date: 20130627
  Serious: Yes (Hospitalization)
  Sender: FDA-Public Use
  Company Number: PHHY2008CA00652

PATIENT
  Sex: Female

DRUGS (2)
  1. SANDOSTATIN LAR [Suspect]
     Indication: CARCINOID TUMOUR
     Dosage: 20 mg, QMO
     Route: 030
     Dates: start: 20070518, end: 20071214
  2. LASIX [Concomitant]

REACTIONS (6)
  - Pleural effusion [Not Recovered/Not Resolved]
  - Cardiac failure congestive [Unknown]
  - Neoplasm progression [Unknown]
  - Gastrointestinal disorder [Recovering/Resolving]
  - Diarrhoea [Unknown]
  - Dyspnoea [Unknown]
